FAERS Safety Report 7677207 (Version 3)
Quarter: 2012Q4

REPORT INFORMATION
  Report Type: 
  Country: US (occurrence: US)
  Receive Date: 20101122
  Receipt Date: 20121203
  Transmission Date: 20130627
  Serious: Yes (Hospitalization)
  Sender: FDA-Public Use
  Company Number: US-BIOGENIDEC-2010BI039823

PATIENT
  Age: 41 Year
  Sex: Female
  Weight: 144 kg

DRUGS (3)
  1. AVONEX [Suspect]
     Indication: MULTIPLE SCLEROSIS
     Route: 030
     Dates: start: 19990101
  2. AVONEX [Suspect]
     Indication: MULTIPLE SCLEROSIS
     Route: 030
     Dates: start: 19990401, end: 20081201
  3. AVONEX [Suspect]
     Indication: MULTIPLE SCLEROSIS
     Route: 030

REACTIONS (3)
  - Coagulation factor VIII level abnormal [Not Recovered/Not Resolved]
  - Menorrhagia [Recovered/Resolved]
  - Anaemia [Recovered/Resolved]
